FAERS Safety Report 6530904-5 (Version None)
Quarter: 2010Q1

REPORT INFORMATION
  Report Type: 
  Country: None (occurrence: None)
  Receive Date: 20100108
  Receipt Date: 20090617
  Transmission Date: 20100710
  Serious: No
  Sender: FDA-Public Use
  Company Number: A0787108A

PATIENT
  Age: 66 Year
  Sex: Female

DRUGS (14)
  1. LOVAZA [Suspect]
     Dosage: 1CAP TWICE PER DAY
     Route: 048
  2. COENZYME Q10 [Suspect]
     Indication: SUPPLEMENTATION THERAPY
     Dosage: 50MG TWICE PER DAY
     Route: 048
     Dates: start: 20080101, end: 20090528
  3. ESTER C [Concomitant]
  4. MAGNESIUM [Concomitant]
  5. VITAMIN B COMPLEX CAP [Concomitant]
  6. CALCIUM CARBONATE + MINERALS + VITAMINS [Concomitant]
  7. LORADIN [Concomitant]
  8. SENIOR MULTIVITAMIN [Concomitant]
  9. ASPIRIN [Concomitant]
  10. LEXAPRO [Concomitant]
  11. AMITRIPTYLINE HCL [Concomitant]
  12. TRIAMTERENE AND HYDROCHLOROTHIAZIDE [Concomitant]
  13. METFORMIN HYDROCHLORIDE [Concomitant]
  14. SYNTHROID [Concomitant]

REACTIONS (2)
  - MEDICATION RESIDUE [None]
  - PRODUCT QUALITY ISSUE [None]
